FAERS Safety Report 7682824-0 (Version None)
Quarter: 2011Q3

REPORT INFORMATION
  Report Type: 
  Country: None (occurrence: None)
  Receive Date: 20110815
  Receipt Date: 20110804
  Transmission Date: 20111222
  Serious: Yes (Other)
  Sender: FDA-Public Use
  Company Number: US-ROCHE-786633

PATIENT
  Sex: Female
  Weight: 74.8 kg

DRUGS (2)
  1. ACCUTANE [Suspect]
     Route: 065
     Dates: start: 19950801, end: 19950901
  2. ACCUTANE [Suspect]
     Dosage: FOR 05 MONTHS
     Route: 065
     Dates: start: 19970101

REACTIONS (14)
  - DEPRESSION [None]
  - ACNE [None]
  - COLITIS ULCERATIVE [None]
  - LIP DRY [None]
  - INSOMNIA [None]
  - SELF ESTEEM DECREASED [None]
  - FATIGUE [None]
  - INJURY [None]
  - INFLAMMATORY BOWEL DISEASE [None]
  - DISTURBANCE IN ATTENTION [None]
  - SUICIDAL IDEATION [None]
  - DEREALISATION [None]
  - THINKING ABNORMAL [None]
  - IRRITABILITY [None]
